FAERS Safety Report 14062211 (Version 1)
Quarter: 2017Q4

REPORT INFORMATION
  Report Type: Spontaneous
  Country: US (occurrence: US)
  Receive Date: 20171009
  Receipt Date: 20171009
  Transmission Date: 20180321
  Serious: No
  Sender: FDA-Public Use
  Company Number: US-PFIZER INC-2017431265

PATIENT
  Age: 38 Year
  Sex: Female

DRUGS (1)
  1. KERYDIN [Suspect]
     Active Substance: TAVABOROLE
     Dosage: 10 ML, UNK
     Dates: start: 20170802, end: 20170807

REACTIONS (1)
  - Nail disorder [Unknown]

NARRATIVE: CASE EVENT DATE: 20170807
